FAERS Safety Report 4823185-1 (Version None)
Quarter: 2005Q4

REPORT INFORMATION
  Report Type: 
  Country: None (occurrence: None)
  Receive Date: 20051027
  Receipt Date: 20050726
  Transmission Date: 20060501
  Serious: Yes (Hospitalization)
  Sender: FDA-Public Use
  Company Number: HQWYE529126JUL05

PATIENT
  Age: 49 Year
  Sex: Female
  Weight: 72.57 kg

DRUGS (6)
  1. PREMARIN [Suspect]
     Indication: HOT FLUSH
  2. ESTRATEST [Suspect]
     Dosage: 1 TABLET DAILY, ORAL
     Route: 048
     Dates: start: 20031118, end: 20031201
  3. OXYCONTIN [Concomitant]
  4. ALBUTEROL [Concomitant]
  5. SINGULAIR [Concomitant]
  6. VERAPAMIL [Concomitant]

REACTIONS (1)
  - PULMONARY EMBOLISM [None]
